FAERS Safety Report 16043513 (Version 1)
Quarter: 2019Q1

REPORT INFORMATION
  Report Type: Spontaneous
  Country: NO (occurrence: NO)
  Receive Date: 20190306
  Receipt Date: 20190306
  Transmission Date: 20190418
  Serious: Yes (Hospitalization, Disabling, Other)
  Sender: FDA-Public Use
  Company Number: NO-JNJFOC-20190305133

PATIENT
  Age: 69 Year
  Sex: Male

DRUGS (4)
  1. VIVAL [Concomitant]
     Active Substance: DIAZEPAM
     Indication: RESPIRATION ABNORMAL
     Route: 065
     Dates: end: 2000
  2. MOGADON [Concomitant]
     Active Substance: NITRAZEPAM
     Indication: SLEEP DISORDER
     Route: 065
     Dates: end: 2000
  3. TRAMADOL HYDROCHLORIDE. [Suspect]
     Active Substance: TRAMADOL HYDROCHLORIDE
     Indication: PRODUCT USED FOR UNKNOWN INDICATION
     Route: 065
  4. PARALGIN FORTE                     /00221201/ [Concomitant]
     Indication: PRODUCT USED FOR UNKNOWN INDICATION
     Route: 065
     Dates: end: 2000

REACTIONS (6)
  - Feeling abnormal [Unknown]
  - Malaise [Unknown]
  - Product administration interrupted [Unknown]
  - Disability [Unknown]
  - Drug dependence [Unknown]
  - Drug withdrawal syndrome [Unknown]
